FAERS Safety Report 4685378-6 (Version None)
Quarter: 2005Q2

REPORT INFORMATION
  Report Type: 
  Country: None (occurrence: None)
  Receive Date: 20050608
  Receipt Date: 20030729
  Transmission Date: 20051028
  Serious: Yes (Other)
  Sender: FDA-Public Use
  Company Number: GB-GLAXOSMITHKLINE-B0305542A

PATIENT
  Age: 64 Year
  Sex: Male

DRUGS (7)
  1. ROSIGLITAZONE MALEATE [Suspect]
     Dosage: 4MG PER DAY
     Route: 048
     Dates: start: 20010919, end: 20021201
  2. METFORMIN [Concomitant]
     Route: 065
  3. GLIPIZIDE [Concomitant]
     Route: 065
  4. BEZAFIBRATE [Concomitant]
     Route: 065
  5. LISINOPRIL [Concomitant]
     Dosage: 5MG PER DAY
  6. ASPIRIN [Concomitant]
     Dosage: 75MG PER DAY
  7. FELODIPINE [Concomitant]
     Dosage: 5MG PER DAY

REACTIONS (1)
  - HIGH DENSITY LIPOPROTEIN DECREASED [None]
